FAERS Safety Report 19057185 (Version 1)
Quarter: 2021Q1

REPORT INFORMATION
  Report Type: Spontaneous
  Country: US (occurrence: US)
  Receive Date: 20210324
  Receipt Date: 20210324
  Transmission Date: 20210420
  Serious: Yes (Hospitalization)
  Sender: FDA-Public Use
  Company Number: None

PATIENT
  Age: 73 Year
  Sex: Male
  Weight: 97.98 kg

DRUGS (1)
  1. PEMBROLIZUMAB (PEMBROLIZUMAB 50MG/VIL INJ) [Suspect]
     Active Substance: PEMBROLIZUMAB
     Indication: OESOPHAGEAL ADENOCARCINOMA STAGE IV
     Dosage: OTHER
     Route: 042
     Dates: start: 20200402, end: 20201210

REACTIONS (11)
  - Dyspnoea [None]
  - Pyrexia [None]
  - Pneumonitis [None]
  - Lymphadenopathy mediastinal [None]
  - Lung opacity [None]
  - Pulmonary embolism [None]
  - Hilar lymphadenopathy [None]
  - Myocardial strain [None]
  - Metastases to liver [None]
  - Loss of personal independence in daily activities [None]
  - Cough [None]

NARRATIVE: CASE EVENT DATE: 20210209
